FAERS Safety Report 5183036-5 (Version None)
Quarter: 2006Q4

REPORT INFORMATION
  Report Type: 
  Country: None (occurrence: None)
  Receive Date: 20061220
  Receipt Date: 20051205
  Transmission Date: 20070319
  Serious: No
  Sender: FDA-Public Use
  Company Number: US-GLAXOSMITHKLINE-A0584627A

PATIENT
  Age: 58 Year
  Sex: Female

DRUGS (2)
  1. NICODERM CQ [Suspect]
     Dates: start: 20051124
  2. CLONIDINE [Concomitant]

REACTIONS (3)
  - JOINT STIFFNESS [None]
  - NECK PAIN [None]
  - PAIN IN EXTREMITY [None]
